FAERS Safety Report 24659117 (Version 1)
Quarter: 2024Q4

REPORT INFORMATION
  Report Type: Spontaneous
  Country: US (occurrence: None)
  Receive Date: 20241125
  Receipt Date: 20241125
  Transmission Date: 20250115
  Serious: Yes (Hospitalization)
  Sender: Public
  Company Number: None

PATIENT
  Sex: Male

DRUGS (10)
  1. TEZSPIRE [Suspect]
     Active Substance: TEZEPELUMAB-EKKO
     Indication: Asthma
     Dosage: FREQ: INJECT 1 PEN UNDER THE SKIN (SUBCUTANEOUS INJECTION) EVERY FOUR WEEKS?
     Route: 058
     Dates: start: 20240326
  2. ASPIRIN [Concomitant]
     Active Substance: ASPIRIN
  3. KLONOPIN [Concomitant]
     Active Substance: CLONAZEPAM
  4. METOPROL [Concomitant]
  5. MYOVIEW [Concomitant]
     Active Substance: TECHNETIUM TC-99M TETROFOSMIN
  6. PLAVIX [Concomitant]
     Active Substance: CLOPIDOGREL BISULFATE
  7. PREVACID [Concomitant]
     Active Substance: LANSOPRAZOLE
  8. SEROQUEL [Concomitant]
     Active Substance: QUETIAPINE FUMARATE
  9. SINGULAIR [Concomitant]
     Active Substance: MONTELUKAST SODIUM
  10. TESTOSTERONE CYPIONATE [Concomitant]
     Active Substance: TESTOSTERONE CYPIONATE

REACTIONS (3)
  - Cyst [None]
  - Asthma [None]
  - Impaired quality of life [None]
